FAERS Safety Report 7202303-4 (Version None)
Quarter: 2010Q4

REPORT INFORMATION
  Report Type: 
  Country: None (occurrence: None)
  Receive Date: 20101229
  Receipt Date: 20101220
  Transmission Date: 20110411
  Serious: Yes (Hospitalization)
  Sender: FDA-Public Use
  Company Number: BE-MEDIMMUNE-MEDI-0011958

PATIENT
  Sex: Female
  Weight: 2.48 kg

DRUGS (5)
  1. SYNAGIS [Suspect]
     Route: 030
     Dates: start: 20101126, end: 20101126
  2. LACTOBACILLUS ACIDOPHILUS [Concomitant]
     Route: 048
     Dates: start: 20101004
  3. GAVISCON [Concomitant]
     Route: 048
     Dates: start: 20101107
  4. FERRIC HYDROXIDE POLYMALTOSE COMPLEX [Concomitant]
  5. URCHOSOL [Concomitant]
     Indication: CHOLESTASIS
     Route: 048
     Dates: start: 20101030

REACTIONS (2)
  - MALAISE [None]
  - SLEEP APNOEA SYNDROME [None]
